FAERS Safety Report 19376519 (Version 1)
Quarter: 2021Q2

REPORT INFORMATION
  Report Type: Spontaneous
  Country: CN (occurrence: CN)
  Receive Date: 20210604
  Receipt Date: 20210604
  Transmission Date: 20210717
  Serious: Yes (Other)
  Sender: FDA-Public Use
  Company Number: CN-PFIZER INC-2021594474

PATIENT
  Age: 39 Year
  Sex: Female
  Weight: 82.9 kg

DRUGS (2)
  1. TRANEXAMIC ACID AND SODIUM CHLORIDE [Suspect]
     Active Substance: TRANEXAMIC ACID
     Indication: VAGINAL HAEMORRHAGE
     Dosage: 100 ML, 1X/DAY
     Route: 041
     Dates: start: 20210513, end: 20210513
  2. CARBOPROST TROMETAMOL [Suspect]
     Active Substance: CARBOPROST TROMETHAMINE
     Indication: VAGINAL HAEMORRHAGE
     Dosage: 250 UG, 1X/DAY
     Route: 030
     Dates: start: 20210513, end: 20210513

REACTIONS (4)
  - Fatigue [Recovering/Resolving]
  - Chest discomfort [Recovering/Resolving]
  - Peripheral coldness [Recovering/Resolving]
  - Cold sweat [Recovering/Resolving]

NARRATIVE: CASE EVENT DATE: 20210513
